FAERS Safety Report 4870507-1 (Version None)
Quarter: 2005Q4

REPORT INFORMATION
  Report Type: 
  Country: None (occurrence: None)
  Receive Date: 20051228
  Receipt Date: 20051219
  Transmission Date: 20060501
  Serious: Yes (Other)
  Sender: FDA-Public Use
  Company Number: 2005BI022358

PATIENT
  Age: 32 Year
  Sex: Female

DRUGS (2)
  1. AVONEX [Suspect]
     Indication: MULTIPLE SCLEROSIS
     Dosage: 30 UG; QW; IM
     Route: 030
     Dates: start: 20050917
  2. IMMUNE GLOBULIN INTRAVENOUS (HUMAN) [Concomitant]

REACTIONS (2)
  - CENTRAL NERVOUS SYSTEM INFLAMMATION [None]
  - MENINGITIS [None]
